FAERS Safety Report 18613994 (Version 1)
Quarter: 2020Q4

REPORT INFORMATION
  Report Type: Report from Study
  Country: None (occurrence: FR)
  Receive Date: 20201214
  Receipt Date: 20201214
  Transmission Date: 20210114
  Serious: Yes (Hospitalization)
  Sender: FDA-Public Use
  Company Number: FR-ABBVIE-18P-056-2589341-00

PATIENT
  Age: 66 Year
  Sex: Male

DRUGS (4)
  1. ATEZOLIZUMAB. [Concomitant]
     Active Substance: ATEZOLIZUMAB
     Indication: LYMPHOMA
     Dosage: DATE OF MOST RECENT DOSE: 29/NOV/2018 (1200 MG, ON DAY 2 OF EACH 21-DAY CYCLE)
     Dates: start: 20181108
  2. OBINUTUZUMAB. [Concomitant]
     Active Substance: OBINUTUZUMAB
     Indication: LYMPHOMA
     Dosage: DATE OF MOST RECENT DOSE: 28/NOV/2018 (1000 MG,ON DAY 1, DAY 8 AND DAY 15 OF CYCLE 1)
     Dates: start: 20181107
  3. VENETOCLAX. [Suspect]
     Active Substance: VENETOCLAX
     Indication: LYMPHOMA
     Dosage: DATE OF MOST RECENT DOSE: 03/DEC/2018 (800 MG, DAY 8 OF CYCLE 1)
     Route: 048
     Dates: start: 20181111
  4. TIORFAN (RACECADOTRIL) [Concomitant]
     Indication: DIARRHOEA
     Dates: start: 20181128

REACTIONS (1)
  - Clostridium colitis [Recovered/Resolved]

NARRATIVE: CASE EVENT DATE: 20181122
